FAERS Safety Report 4449441-7 (Version None)
Quarter: 2004Q3

REPORT INFORMATION
  Report Type: 
  Country: None (occurrence: None)
  Receive Date: 20040909
  Receipt Date: 20040129
  Transmission Date: 20050211
  Serious: Yes (Death)
  Sender: FDA-Public Use
  Company Number: A03200400305

PATIENT
  Age: 0 Day
  Sex: Male

DRUGS (3)
  1. PLAVIX [Suspect]
     Indication: CEREBROVASCULAR ACCIDENT
     Dosage: 75 MG QD - TRANSPLACENTAL
     Route: 064
     Dates: start: 20030222, end: 20030901
  2. PLAVIX [Suspect]
     Indication: CEREBROVASCULAR ACCIDENT
     Dosage: 75 MG QD - TRANSPLACENTAL
     Route: 064
     Dates: start: 20031002, end: 20031112
  3. HEPARIN [Concomitant]

REACTIONS (4)
  - CAESAREAN SECTION [None]
  - DEATH NEONATAL [None]
  - DRUG EXPOSURE DURING PREGNANCY [None]
  - PREMATURE BABY [None]
